FAERS Safety Report 5305254-5 (Version None)
Quarter: 2007Q2

REPORT INFORMATION
  Report Type: 
  Country: None (occurrence: None)
  Receive Date: 20070424
  Receipt Date: 20070410
  Transmission Date: 20071010
  Serious: Yes (Hospitalization)
  Sender: FDA-Public Use
  Company Number: PHEH2007US04853

PATIENT
  Age: 70 Year
  Sex: Female

DRUGS (7)
  1. CRESTOR [Concomitant]
     Dosage: 10 MG, UNK
  2. NEXIUM [Concomitant]
  3. CELEBREX [Concomitant]
  4. ASPIRIN [Concomitant]
     Dosage: 81 MG, UNK
  5. SINGULAIR [Concomitant]
  6. ZELNORM [Suspect]
     Indication: CONSTIPATION
     Dosage: 6 MG, BID
     Route: 048
     Dates: start: 20060401, end: 20070327
  7. CALCIUM WITH VITAMIN D [Concomitant]

REACTIONS (2)
  - BLOOD POTASSIUM DECREASED [None]
  - CHEST PAIN [None]
